FAERS Safety Report 7903743-8 (Version None)
Quarter: 2011Q4

REPORT INFORMATION
  Report Type: 
  Country: None (occurrence: None)
  Receive Date: 20111109
  Receipt Date: 20111103
  Transmission Date: 20120403
  Serious: Yes (Death)
  Sender: FDA-Public Use
  Company Number: US-SANOFI-AVENTIS-2011SA072418

PATIENT
  Age: 64 Year
  Sex: Female

DRUGS (1)
  1. PLAVIX [Suspect]
     Dates: start: 20110401

REACTIONS (3)
  - NEOPLASM MALIGNANT [None]
  - CEREBROVASCULAR ACCIDENT [None]
  - CONVULSION [None]
